FAERS Safety Report 11218788 (Version 6)
Quarter: 2016Q2

REPORT INFORMATION
  Report Type: Spontaneous
  Country: US (occurrence: US)
  Receive Date: 20150625
  Receipt Date: 20160628
  Transmission Date: 20160815
  Serious: Yes (Hospitalization, Other)
  Sender: FDA-Public Use
  Company Number: US-GLAXOSMITHKLINE-US2015GSK089998

PATIENT
  Age: 34 Year
  Sex: Male

DRUGS (6)
  1. FLOLAN [Suspect]
     Active Substance: EPOPROSTENOL SODIUM
     Dosage: 17.5 NG/KG/MIN, CO
     Route: 042
  2. FLOLAN [Suspect]
     Active Substance: EPOPROSTENOL SODIUM
     Dosage: UNK, CO
     Route: 042
  3. FLOLAN [Suspect]
     Active Substance: EPOPROSTENOL SODIUM
     Dosage: 17.5 NG/KG/MIN (CONCENTRATION 30,000 NG/ML, PUMP RATE 50 ML/DAY, VIAL STRENGTH 1.5 MG), CO
     Route: 042
  4. REVATIO [Concomitant]
     Active Substance: SILDENAFIL CITRATE
  5. FLOLAN [Suspect]
     Active Substance: EPOPROSTENOL SODIUM
     Indication: PULMONARY HYPERTENSION
     Dosage: 17.5 NG/KG/MIN, CO
     Route: 042
     Dates: start: 20120510
  6. FLOLAN [Suspect]
     Active Substance: EPOPROSTENOL SODIUM
     Dosage: 17.5 NG/KG/MIN (CONCENTRATION 30,000 NG/ML, PUMP RATE 50 ML/DAY, VIAL STRENGTH 1.5 MG), CO
     Route: 042
     Dates: start: 20120510

REACTIONS (8)
  - Lung disorder [Not Recovered/Not Resolved]
  - Emergency care [Not Recovered/Not Resolved]
  - Chest pain [Unknown]
  - Central venous catheterisation [Recovered/Resolved]
  - Dyspnoea [Unknown]
  - Haemoptysis [Unknown]
  - Device related infection [Unknown]
  - Cardiac failure chronic [Not Recovered/Not Resolved]

NARRATIVE: CASE EVENT DATE: 20150615
